FAERS Safety Report 5389748-2 (Version None)
Quarter: 2007Q3

REPORT INFORMATION
  Report Type: 
  Country: None (occurrence: None)
  Receive Date: 20070717
  Receipt Date: 20070713
  Transmission Date: 20080115
  Serious: Yes (Other)
  Sender: FDA-Public Use
  Company Number: JP-GENENTECH-244497

PATIENT
  Age: 45 Year
  Sex: Male

DRUGS (6)
  1. ACTIVASE [Suspect]
     Indication: CEREBRAL ARTERY EMBOLISM
     Dosage: 46.8 MG, UNK
     Route: 042
     Dates: start: 20070315, end: 20070315
  2. PLAVIX [Suspect]
     Indication: CEREBRAL ARTERY EMBOLISM
     Dosage: 75 MG, UNK
     Route: 048
     Dates: start: 20070316, end: 20070321
  3. PLAVIX [Suspect]
     Dosage: 25 MG, UNK
     Route: 048
     Dates: start: 20070322, end: 20070328
  4. GASTER [Concomitant]
     Indication: DRUG USE FOR UNKNOWN INDICATION
     Dosage: 40 MG, UNK
     Route: 048
     Dates: start: 20070316, end: 20070317
  5. ASPIRIN [Concomitant]
     Indication: DRUG USE FOR UNKNOWN INDICATION
     Dosage: 100 MG, UNK
     Route: 048
     Dates: start: 20070316, end: 20070318
  6. SOLDEM [Concomitant]
     Indication: DRUG USE FOR UNKNOWN INDICATION
     Dosage: 500 ML, UNK
     Route: 042
     Dates: start: 20070315, end: 20070430

REACTIONS (1)
  - LIVER DISORDER [None]
